FAERS Safety Report 9795503 (Version 1)
Quarter: 2014Q1

REPORT INFORMATION
  Report Type: Spontaneous
  Country: DE (occurrence: DE)
  Receive Date: 20140103
  Receipt Date: 20140103
  Transmission Date: 20141002
  Serious: Yes (Other)
  Sender: FDA-Public Use
  Company Number: DE-MYLANLABS-2013S1028876

PATIENT
  Age: 24 Year
  Sex: Female

DRUGS (5)
  1. AMITRIPTYLIN [Suspect]
     Indication: DEPRESSION
     Dosage: 75 [MG/D ]
     Route: 048
     Dates: start: 20090908, end: 20100616
  2. NALOXONE HYDROCHLORIDE W/TILIDINE HYDROCHLO. [Suspect]
     Indication: CROHN^S DISEASE
     Dosage: 8 [MG/D ] / 100 [MG/D ]
     Route: 048
     Dates: start: 20090908, end: 20100616
  3. FEMIBION /01597501/ [Concomitant]
     Indication: PROPHYLAXIS OF NEURAL TUBE DEFECT
     Route: 048
     Dates: start: 20091012, end: 20091222
  4. CLAVERSAL [Concomitant]
     Indication: CROHN^S DISEASE
     Route: 048
     Dates: start: 20100310, end: 20100330
  5. MCP /00041901/ [Concomitant]
     Indication: NAUSEA
     Route: 042
     Dates: start: 20100201, end: 20100228

REACTIONS (2)
  - Exposure during pregnancy [Unknown]
  - Gestational diabetes [Unknown]
